FAERS Safety Report 17692625 (Version 1)
Quarter: 2020Q2

REPORT INFORMATION
  Report Type: Spontaneous
  Country: US (occurrence: US)
  Receive Date: 20200420
  Receipt Date: 20200420
  Transmission Date: 20200714
  Serious: Yes (Hospitalization)
  Sender: FDA-Public Use
  Company Number: None

PATIENT
  Age: 69 Year
  Sex: Male

DRUGS (1)
  1. ITRACONAZOLE (ITRACONAZOLE 50MG/5ML SOLN, ORAL) [Suspect]
     Active Substance: ITRACONAZOLE
     Indication: HISTOPLASMOSIS
     Route: 048
     Dates: start: 20180102, end: 20180226

REACTIONS (7)
  - Exfoliative rash [None]
  - Histoplasmosis disseminated [None]
  - Oedema [None]
  - Cardiac failure congestive [None]
  - Urinary tract infection [None]
  - Therapeutic product cross-reactivity [None]
  - Brain natriuretic peptide increased [None]

NARRATIVE: CASE EVENT DATE: 20180226
